FAERS Safety Report 9799035 (Version 2)
Quarter: 2015Q3

REPORT INFORMATION
  Report Type: Spontaneous
  Country: US (occurrence: US)
  Receive Date: 20140106
  Receipt Date: 20150806
  Transmission Date: 20151125
  Serious: No
  Sender: FDA-Public Use
  Company Number: US-GILEAD-2010-0033325

PATIENT
  Age: 63 Year
  Sex: Female

DRUGS (10)
  1. LETAIRIS [Suspect]
     Active Substance: AMBRISENTAN
     Indication: PULMONARY ARTERIAL HYPERTENSION
     Route: 048
     Dates: start: 20101015, end: 20101105
  2. LACTULOSE. [Concomitant]
     Active Substance: LACTULOSE
  3. OS-CAL PLUS D [Concomitant]
  4. LASIX [Concomitant]
     Active Substance: FUROSEMIDE
  5. XIFAXAN [Concomitant]
     Active Substance: RIFAXIMIN
  6. MULTIVITAMIN [Concomitant]
     Active Substance: VITAMINS
  7. SPIRONOLACTONE. [Concomitant]
     Active Substance: SPIRONOLACTONE
  8. ACTIGALL [Concomitant]
     Active Substance: URSODIOL
  9. FOSAMAX [Concomitant]
     Active Substance: ALENDRONATE SODIUM
  10. K-DUR [Concomitant]
     Active Substance: POTASSIUM CHLORIDE

REACTIONS (2)
  - Weight increased [Unknown]
  - Swelling [Unknown]
